FAERS Safety Report 9164189 (Version 1)
Quarter: 2013Q1

REPORT INFORMATION
  Report Type: Spontaneous
  Country: US (occurrence: None)
  Receive Date: 20130313
  Receipt Date: 20130313
  Transmission Date: 20140127
  Serious: Yes (Life-Threatening)
  Sender: FDA-Public Use
  Company Number: None

PATIENT
  Age: 16 Year
  Sex: Female
  Weight: 49.9 kg

DRUGS (1)
  1. BEYAZ [Suspect]
     Indication: CONTRACEPTION
     Dosage: 1 PILL ONCE A DAY PO
     Route: 048
     Dates: start: 20130106, end: 20130301

REACTIONS (1)
  - Deep vein thrombosis [None]
